FAERS Safety Report 4650473-4 (Version None)
Quarter: 2005Q2

REPORT INFORMATION
  Report Type: 
  Country: None (occurrence: None)
  Receive Date: 20050429
  Receipt Date: 20050418
  Transmission Date: 20051028
  Serious: Yes (Death)
  Sender: FDA-Public Use
  Company Number: RS005130-GB

PATIENT
  Age: 78 Year
  Sex: Male

DRUGS (11)
  1. RABEPRAZOLE SODIUM [Suspect]
     Dosage: ORAL
     Route: 048
  2. SPIRIVA [Suspect]
     Indication: CHRONIC OBSTRUCTIVE PULMONARY DISEASE
     Dates: start: 20040201
  3. CO-CODAMOL (PANADEINE CO) [Suspect]
  4. SIMVASTATIN [Suspect]
  5. FUROSEMIDE [Suspect]
  6. ASPIRIN [Suspect]
  7. NICORANDIL (NICORANDIL) [Suspect]
  8. SERETIDE (SERETIDE) [Suspect]
  9. SALBUTAMOL (SALBUTAMOL) [Suspect]
  10. ISOSORBIDE MONONITRATE [Suspect]
  11. BISOPROLOL (BISOPROLOL) [Suspect]

REACTIONS (3)
  - CONDITION AGGRAVATED [None]
  - LEFT VENTRICULAR FAILURE [None]
  - MYOCARDIAL ISCHAEMIA [None]
